FAERS Safety Report 6939132-2 (Version None)
Quarter: 2010Q3

REPORT INFORMATION
  Report Type: 
  Country: None (occurrence: None)
  Receive Date: 20100824
  Receipt Date: 20100714
  Transmission Date: 20110219
  Serious: No
  Sender: FDA-Public Use
  Company Number: US-PFIZER INC-2010089014

PATIENT
  Sex: Female

DRUGS (8)
  1. ALPRAZOLAM [Suspect]
     Indication: ANXIETY
     Dosage: 0.25 MG, UNK
     Route: 048
     Dates: start: 20100701
  2. ALPRAZOLAM [Suspect]
     Dosage: TOOK HALF THE TABLET OF 0.25MG
     Dates: start: 20100714
  3. LISINOPRIL [Concomitant]
     Indication: BLOOD CHOLESTEROL INCREASED
     Dosage: 5 MG, DAILY
     Route: 048
     Dates: start: 20100201
  4. CRESTOR [Concomitant]
     Indication: BLOOD CHOLESTEROL INCREASED
     Dosage: 5 MG, DAILY
     Route: 048
     Dates: start: 20100201
  5. ACETYLSALICYLIC ACID [Concomitant]
     Indication: BLOOD CHOLESTEROL INCREASED
     Dosage: 325 MG, DAILY
     Route: 048
     Dates: start: 20100201
  6. ACETYLSALICYLIC ACID [Concomitant]
     Indication: PROPHYLAXIS
  7. FISH OIL [Concomitant]
     Dosage: UNK
  8. CO-Q-10 [Concomitant]
     Dosage: UNK

REACTIONS (1)
  - ANXIETY [None]
